FAERS Safety Report 6645590-3 (Version None)
Quarter: 2010Q1

REPORT INFORMATION
  Report Type: 
  Country: None (occurrence: None)
  Receive Date: 20100319
  Receipt Date: 20100319
  Transmission Date: 20100710
  Serious: Yes (Life-Threatening)
  Sender: FDA-Public Use
  Company Number: None

PATIENT
  Age: 57 Year
  Sex: Female
  Weight: 89.3586 kg

DRUGS (2)
  1. TOPROL-XL [Suspect]
     Indication: HYPERTENSION
     Dosage: 25MG 4 TIMES PER DAY PO
     Route: 048
     Dates: start: 20100126, end: 20100202
  2. TOPROL-XL [Suspect]
     Indication: HYPERTENSION
     Dosage: 100MG 1 TIME PER DAY PO
     Route: 048
     Dates: start: 20100202, end: 20100209

REACTIONS (9)
  - DYSPNOEA [None]
  - FEELING HOT [None]
  - HEART RATE DECREASED [None]
  - HYPERSENSITIVITY [None]
  - LIP SWELLING [None]
  - PALPITATIONS [None]
  - PHARYNGEAL OEDEMA [None]
  - SKIN DISCOLOURATION [None]
  - SKIN EXFOLIATION [None]
